FAERS Safety Report 26045428 (Version 1)
Quarter: 2025Q4

REPORT INFORMATION
  Report Type: Spontaneous
  Country: US (occurrence: US)
  Receive Date: 20251114
  Receipt Date: 20251114
  Transmission Date: 20260118
  Serious: Yes (Death, Other)
  Sender: MACLEODS
  Company Number: US-MACLEODS PHARMA-MAC2025056316

PATIENT
  Age: 33 Year
  Sex: Male
  Weight: 100 kg

DRUGS (8)
  1. LIDOCAINE [Suspect]
     Active Substance: LIDOCAINE
     Indication: Local anaesthesia
     Dosage: 10 MG/KG SUBCU.IN
     Route: 042
  2. MIDAZOLAM [Suspect]
     Active Substance: MIDAZOLAM
     Indication: Local anaesthesia
     Dosage: 5 MG IV
     Route: 042
  3. MEPERIDINE [Suspect]
     Active Substance: MEPERIDINE
     Indication: Local anaesthesia
     Dosage: 100 MG IV
     Route: 042
  4. PROPOFOL [Suspect]
     Active Substance: PROPOFOL
     Indication: Local anaesthesia
     Dosage: 20 MG IV
     Route: 042
  5. ISOFLURANE [Suspect]
     Active Substance: ISOFLURANE
     Indication: Local anaesthesia
     Route: 065
  6. NITROUS OXIDE [Suspect]
     Active Substance: NITROUS OXIDE
     Indication: Local anaesthesia
     Route: 065
  7. EPINEPHRINE [Suspect]
     Active Substance: EPINEPHRINE
     Indication: Local anaesthesia
     Route: 065
  8. ATRACURIUM [Suspect]
     Active Substance: ATRACURIUM
     Indication: Local anaesthesia
     Route: 065

REACTIONS (6)
  - Cardiac arrest [Fatal]
  - Local anaesthetic systemic toxicity [Unknown]
  - Bradycardia [Unknown]
  - Hypotension [Unknown]
  - Overdose [Unknown]
  - Drug interaction [Unknown]
